FAERS Safety Report 11980452 (Version 2)
Quarter: 2016Q1

REPORT INFORMATION
  Report Type: Spontaneous
  Country: US (occurrence: US)
  Receive Date: 20160129
  Receipt Date: 20160315
  Transmission Date: 20160526
  Serious: Yes (Hospitalization)
  Sender: FDA-Public Use
  Company Number: US-OTSUKA-2016_001637

PATIENT
  Sex: Female

DRUGS (3)
  1. ABILIFY MAINTENA [Suspect]
     Active Substance: ARIPIPRAZOLE
     Indication: BIPOLAR DISORDER
     Dosage: UNK
     Route: 030
     Dates: start: 2013
  2. SEROQUEL [Suspect]
     Active Substance: QUETIAPINE FUMARATE
     Indication: BIPOLAR DISORDER
     Dosage: 100 MG, UNK
     Route: 065
     Dates: start: 201411
  3. ABILIFY MAINTENA [Suspect]
     Active Substance: ARIPIPRAZOLE
     Indication: MANIA

REACTIONS (7)
  - Pain [Unknown]
  - Fall [Unknown]
  - Drug ineffective [Unknown]
  - Spinal operation [Unknown]
  - Hip fracture [Unknown]
  - Hip fracture [Recovered/Resolved]
  - Knee arthroplasty [Unknown]

NARRATIVE: CASE EVENT DATE: 201412
